FAERS Safety Report 7888964-5 (Version None)
Quarter: 2011Q4

REPORT INFORMATION
  Report Type: 
  Country: None (occurrence: None)
  Receive Date: 20111103
  Receipt Date: 20111027
  Transmission Date: 20120403
  Serious: Yes (Disabling)
  Sender: FDA-Public Use
  Company Number: PHEH2011US07959

PATIENT
  Sex: Female

DRUGS (3)
  1. HORMONES [Concomitant]
     Dosage: UNK UKN, UNK
  2. FAMPRIDINE [Concomitant]
     Dosage: UNK UKN, UNK
  3. GILENYA [Suspect]
     Indication: MULTIPLE SCLEROSIS
     Dosage: 0.5 MG, QD
     Route: 048

REACTIONS (5)
  - HYPOAESTHESIA [None]
  - VISUAL ACUITY REDUCED [None]
  - HEMIPARESIS [None]
  - PARAESTHESIA [None]
  - INSOMNIA [None]
